FAERS Safety Report 6068224-8 (Version None)
Quarter: 2009Q1

REPORT INFORMATION
  Report Type: 
  Country: None (occurrence: None)
  Receive Date: 20090203
  Receipt Date: 20090120
  Transmission Date: 20090719
  Serious: No
  Sender: FDA-Public Use
  Company Number: 005236

PATIENT
  Age: 78 Year
  Sex: Male
  Weight: 66 kg

DRUGS (9)
  1. PLETAL [Suspect]
     Dosage: 100 MG, BID ORAL
     Route: 048
     Dates: start: 20081105, end: 20081201
  2. PERINDOPRIL ERBUMINE [Concomitant]
  3. ASPIRIN [Concomitant]
  4. OPALMON (LIMAPROST ALFADEX) [Concomitant]
  5. UNINORM (BENZBROMARONE) [Concomitant]
  6. VONTROL [Concomitant]
  7. MARZULENE S (SODIUM AZULENE SULFONATE_L-GLUTAMINE) [Concomitant]
  8. TIZANIDINE HCL [Concomitant]
  9. NITRODERM [Concomitant]

REACTIONS (4)
  - BUNDLE BRANCH BLOCK RIGHT [None]
  - ELECTROCARDIOGRAM QT PROLONGED [None]
  - PALPITATIONS [None]
  - QRS AXIS ABNORMAL [None]
